FAERS Safety Report 8669343 (Version 3)
Quarter: 2012Q4

REPORT INFORMATION
  Report Type: 
  Country: US (occurrence: US)
  Receive Date: 20120717
  Receipt Date: 20120907
  Transmission Date: 20130627
  Serious: Yes (Death, Other)
  Sender: FDA-Public Use
  Company Number: US-BAYER-2012-071023

PATIENT
  Age: 54 Year
  Sex: Male

DRUGS (1)
  1. BETASERON [Suspect]
     Indication: PRODUCT USED FOR UNKNOWN INDICATION
     Dosage: 0.25 mg, UNK
     Route: 058
     Dates: start: 201104, end: 20120710

REACTIONS (2)
  - Multiple sclerosis [Fatal]
  - Respiratory failure [Fatal]
